FAERS Safety Report 4556463-4 (Version None)
Quarter: 2005Q1

REPORT INFORMATION
  Report Type: 
  Country: None (occurrence: None)
  Receive Date: 20050120
  Receipt Date: 20041126
  Transmission Date: 20050727
  Serious: Yes (Disabling, Other)
  Sender: FDA-Public Use
  Company Number: PHRM2004FR03494

PATIENT
  Sex: Male

DRUGS (1)
  1. FRACTAL [Suspect]
     Indication: HYPERCHOLESTEROLAEMIA
     Dosage: 80 MG, QD
     Route: 048
     Dates: start: 20040101

REACTIONS (2)
  - SUTURE INSERTION [None]
  - TENDON RUPTURE [None]
